FAERS Safety Report 17484530 (Version 1)
Quarter: 2020Q1

REPORT INFORMATION
  Report Type: Spontaneous
  Country: FR (occurrence: FR)
  Receive Date: 20200302
  Receipt Date: 20200302
  Transmission Date: 20200409
  Serious: Yes (Hospitalization)
  Sender: FDA-Public Use
  Company Number: FR-ROCHE-2556817

PATIENT
  Age: 29 Year
  Sex: Female

DRUGS (1)
  1. TOCILIZUMAB. [Suspect]
     Active Substance: TOCILIZUMAB
     Indication: PAIN
     Route: 065
     Dates: start: 201912, end: 20200130

REACTIONS (2)
  - Eosinophilia [Recovered/Resolved]
  - Allergic hepatitis [Recovering/Resolving]

NARRATIVE: CASE EVENT DATE: 20191224
